FAERS Safety Report 20278393 (Version 5)
Quarter: 2024Q1

REPORT INFORMATION
  Report Type: Spontaneous
  Country: JP (occurrence: JP)
  Receive Date: 20220103
  Receipt Date: 20240118
  Transmission Date: 20240410
  Serious: Yes (Hospitalization, Other)
  Sender: FDA-Public Use
  Company Number: JP-BRISTOL-MYERS SQUIBB COMPANY-BMS-2021-125375

PATIENT
  Age: 78 Year
  Sex: Male

DRUGS (4)
  1. YERVOY [Suspect]
     Active Substance: IPILIMUMAB
     Indication: Metastatic renal cell carcinoma
     Route: 041
     Dates: start: 20210927, end: 20210927
  2. YERVOY [Suspect]
     Active Substance: IPILIMUMAB
     Route: 041
     Dates: start: 20211026, end: 20211026
  3. OPDIVO [Suspect]
     Active Substance: NIVOLUMAB
     Indication: Metastatic renal cell carcinoma
     Route: 041
     Dates: start: 20210927, end: 20210927
  4. OPDIVO [Suspect]
     Active Substance: NIVOLUMAB
     Route: 041
     Dates: start: 20211026, end: 20211026

REACTIONS (10)
  - Liver disorder [Unknown]
  - Pneumonia [Recovering/Resolving]
  - Immune-mediated hepatitis [Recovered/Resolved]
  - Malaise [Unknown]
  - Chills [Recovered/Resolved]
  - Headache [Recovered/Resolved]
  - Pyrexia [Recovered/Resolved]
  - Pneumonia bacterial [Recovering/Resolving]
  - Acute respiratory failure [Recovering/Resolving]
  - Immune-mediated lung disease [Recovering/Resolving]

NARRATIVE: CASE EVENT DATE: 20211018
